FAERS Safety Report 21323346 (Version 1)
Quarter: 2022Q3

REPORT INFORMATION
  Report Type: Spontaneous
  Country: US (occurrence: US)
  Receive Date: 20220912
  Receipt Date: 20220912
  Transmission Date: 20221027
  Serious: Yes (Other)
  Sender: FDA-Public Use
  Company Number: US-SA-SAC20220909001629

PATIENT
  Sex: Male

DRUGS (3)
  1. ZANTAC [Suspect]
     Active Substance: RANITIDINE HYDROCHLORIDE
     Dosage: UNK; OVER THE COUNTER
     Route: 048
     Dates: start: 1981, end: 2019
  2. ZANTAC [Suspect]
     Active Substance: RANITIDINE HYDROCHLORIDE
     Dosage: UNK; PRESCRIPTION
     Route: 048
     Dates: start: 1981, end: 2019
  3. RANITIDINE HYDROCHLORIDE [Suspect]
     Active Substance: RANITIDINE HYDROCHLORIDE
     Dosage: UNK PRESCRIPTION RANITIDINE
     Dates: start: 1981, end: 2019

REACTIONS (1)
  - Prostate cancer [Unknown]
